FAERS Safety Report 9235081 (Version 1)
Quarter: 2013Q2

REPORT INFORMATION
  Report Type: Report from Study
  Country: US (occurrence: US)
  Receive Date: 20130416
  Receipt Date: 20130416
  Transmission Date: 20140414
  Serious: Yes (Life-Threatening, Hospitalization, Other)
  Sender: FDA-Public Use
  Company Number: US-TEVA-391247USA

PATIENT
  Age: 8 Month
  Sex: Female
  Weight: 7.4 kg

DRUGS (10)
  1. LESTAURTINIB [Suspect]
     Indication: ACUTE LYMPHOCYTIC LEUKAEMIA
     Dates: start: 20121217, end: 20130406
  2. CYCLOPHOSPHAMIDE [Suspect]
     Indication: ACUTE LYMPHOCYTIC LEUKAEMIA
     Dates: start: 20121217, end: 20130322
  3. CYTARABINE [Suspect]
     Indication: ACUTE LYMPHOCYTIC LEUKAEMIA
     Dates: start: 20121217, end: 20130402
  4. DAUNORUBICIN [Suspect]
     Dates: start: 20121217, end: 20130319
  5. DEXAMETHASONE [Suspect]
     Dates: start: 20121217, end: 20130409
  6. HYDROCORTISONE [Suspect]
     Indication: ACUTE LYMPHOCYTIC LEUKAEMIA
     Dates: start: 20121217, end: 20130402
  7. ETOPOSIDE [Suspect]
     Indication: ACUTE LYMPHOCYTIC LEUKAEMIA
     Dates: start: 20121217, end: 20130304
  8. METHOTREXATE [Suspect]
     Indication: ACUTE LYMPHOCYTIC LEUKAEMIA
     Dates: start: 20121217, end: 20130402
  9. PEGASPARGASE [Suspect]
     Dates: start: 20121217, end: 20130321
  10. VINCRISTINE [Suspect]
     Dates: start: 20121217, end: 20130402

REACTIONS (7)
  - Neutrophil count decreased [Recovering/Resolving]
  - White blood cell count decreased [Recovering/Resolving]
  - Lymphocyte count decreased [Recovering/Resolving]
  - Febrile neutropenia [Recovering/Resolving]
  - Platelet count decreased [Recovering/Resolving]
  - Sepsis [Recovering/Resolving]
  - Skin ulcer [Recovering/Resolving]
